FAERS Safety Report 6981603-7 (Version None)
Quarter: 2010Q3

REPORT INFORMATION
  Report Type: 
  Country: None (occurrence: None)
  Receive Date: 20100914
  Receipt Date: 20100910
  Transmission Date: 20110219
  Serious: Yes (Death, Life-Threatening, Hospitalization)
  Sender: FDA-Public Use
  Company Number: US-US-EMD SERONO, INC.-430012M06USA

PATIENT
  Sex: Male
  Weight: 111 kg

DRUGS (8)
  1. NOVANTRONE [Suspect]
     Indication: MULTIPLE SCLEROSIS
     Route: 042
     Dates: start: 20040501, end: 20050307
  2. CLADRIBINE [Suspect]
     Indication: MULTIPLE SCLEROSIS
     Route: 058
     Dates: start: 19961127, end: 19961201
  3. CLADRIBINE [Suspect]
     Route: 058
     Dates: start: 19970109, end: 19970113
  4. CLADRIBINE [Suspect]
     Route: 058
     Dates: start: 19970211, end: 19970215
  5. CLADRIBINE [Suspect]
     Route: 058
     Dates: start: 19970312, end: 19970316
  6. CLADRIBINE [Suspect]
     Route: 058
     Dates: start: 19970416, end: 19970420
  7. CLADRIBINE [Suspect]
     Route: 058
     Dates: start: 19970515, end: 19970519
  8. COPAXONE [Concomitant]
     Route: 058
     Dates: start: 20050101, end: 20060201

REACTIONS (3)
  - METASTASES TO BONE [None]
  - METASTASES TO LIVER [None]
  - OESOPHAGEAL CARCINOMA [None]
